FAERS Safety Report 7760340-5 (Version None)
Quarter: 2011Q3

REPORT INFORMATION
  Report Type: 
  Country: None (occurrence: None)
  Receive Date: 20110919
  Receipt Date: 20110912
  Transmission Date: 20111222
  Serious: Yes (Hospitalization)
  Sender: FDA-Public Use
  Company Number: US-B.I. PHARMACEUTICALS,INC./RIDGEFIELD-2011-BP-19856BP

PATIENT
  Age: 82 Year
  Sex: Male

DRUGS (7)
  1. HYDROCHLOROTHIAZIDE [Concomitant]
     Dosage: 25 MG
  2. PRADAXA [Suspect]
     Indication: ATRIAL FIBRILLATION
     Dosage: 300 MG
     Dates: start: 20101122, end: 20110713
  3. TENORMIN [Concomitant]
     Dosage: 25 MG
  4. POTASSIUM CHLORIDE [Concomitant]
     Dosage: 20 MEQ
  5. SOTALOL HCL [Concomitant]
     Dosage: 80 MG
  6. ASPIRIN [Concomitant]
     Dates: end: 20110712
  7. FAMOTIDINE [Concomitant]
     Dosage: 20 MG

REACTIONS (2)
  - APHASIA [None]
  - SUBDURAL HAEMATOMA [None]
